FAERS Safety Report 5412776-5 (Version None)
Quarter: 2007Q3

REPORT INFORMATION
  Report Type: 
  Country: None (occurrence: None)
  Receive Date: 20070813
  Receipt Date: 20070803
  Transmission Date: 20080115
  Serious: Yes (Disabling)
  Sender: FDA-Public Use
  Company Number: CA-BOEHRINGER INGELHEIM PHARMACEUTICALS, INC.-2007-CN-00603CN

PATIENT
  Age: 63 Year

DRUGS (1)
  1. MICARDIS HCT [Suspect]
     Dates: start: 20070616, end: 20070703

REACTIONS (4)
  - APHASIA [None]
  - BLINDNESS [None]
  - DEAFNESS [None]
  - SENSORY DISTURBANCE [None]
